FAERS Safety Report 6141645-0 (Version None)
Quarter: 2009Q2

REPORT INFORMATION
  Report Type: 
  Country: None (occurrence: None)
  Receive Date: 20090402
  Receipt Date: 20090330
  Transmission Date: 20091009
  Serious: Yes (Other)
  Sender: FDA-Public Use
  Company Number: B0567770A

PATIENT
  Age: 33 Year
  Sex: Male

DRUGS (4)
  1. CISATRACURIUM [Suspect]
  2. PROPOFOL [Suspect]
  3. FENTANYL-25 [Suspect]
  4. CEFAZOLIN AND DEXTROSE [Suspect]

REACTIONS (4)
  - ANAPHYLACTIC REACTION [None]
  - BREATH SOUNDS ABNORMAL [None]
  - BRONCHOSPASM [None]
  - PEAK EXPIRATORY FLOW RATE DECREASED [None]
